FAERS Safety Report 9465687 (Version 3)
Quarter: 2013Q4

REPORT INFORMATION
  Report Type: Spontaneous
  Country: JP (occurrence: JP)
  Receive Date: 20130820
  Receipt Date: 20131226
  Transmission Date: 20140711
  Serious: Yes (Other)
  Sender: FDA-Public Use
  Company Number: PHHY2013JP087161

PATIENT
  Age: 36 Year
  Sex: Female

DRUGS (4)
  1. NEORAL [Suspect]
     Indication: SCLERODERMA
     Route: 048
  2. NEORAL [Suspect]
     Indication: ATROPHODERMA OF PASINI AND PIERINI
  3. PREDNISOLONE [Suspect]
     Indication: SCLERODERMA
     Dosage: 30 MG, UNK
  4. PREDNISOLONE [Suspect]
     Indication: ATROPHODERMA OF PASINI AND PIERINI

REACTIONS (2)
  - Atrophoderma of Pasini and Pierini [Unknown]
  - Drug ineffective [Unknown]
